FAERS Safety Report 5163429-2 (Version None)
Quarter: 2006Q4

REPORT INFORMATION
  Report Type: 
  Country: None (occurrence: None)
  Receive Date: 20061204
  Receipt Date: 20061116
  Transmission Date: 20070319
  Serious: Yes (Other)
  Sender: FDA-Public Use
  Company Number: DE-ROCHE-471644

PATIENT
  Age: 77 Year
  Sex: Female
  Weight: 53 kg

DRUGS (2)
  1. BONIVA [Suspect]
     Indication: OSTEOPOROSIS
     Route: 048
     Dates: start: 20051115, end: 20061021
  2. FOSAMAX [Suspect]
     Indication: OSTEOPOROSIS
     Route: 048
     Dates: start: 20050115, end: 20050715

REACTIONS (3)
  - DIARRHOEA [None]
  - DIVERTICULUM INTESTINAL HAEMORRHAGIC [None]
  - FLATULENCE [None]
